FAERS Safety Report 15458743 (Version 2)
Quarter: 2018Q4

REPORT INFORMATION
  Report Type: Spontaneous
  Country: SE (occurrence: SE)
  Receive Date: 20181003
  Receipt Date: 20181112
  Transmission Date: 20190204
  Serious: Yes (Other)
  Sender: FDA-Public Use
  Company Number: SE-009507513-1810SWE000238

PATIENT
  Sex: Female

DRUGS (1)
  1. ZERBAXA [Suspect]
     Active Substance: CEFTOLOZANE SULFATE\TAZOBACTAM SODIUM
     Indication: PSEUDOMONAL BACTERAEMIA
     Dosage: UNK

REACTIONS (2)
  - Off label use [Unknown]
  - Pathogen resistance [Unknown]
